FAERS Safety Report 17091495 (Version 1)
Quarter: 2019Q4

REPORT INFORMATION
  Report Type: Spontaneous
  Country: US (occurrence: US)
  Receive Date: 20191031
  Receipt Date: 20191031
  Transmission Date: 20200122
  Serious: Yes (Hospitalization)
  Sender: FDA-Public Use
  Company Number: None

PATIENT
  Age: 70 Year
  Sex: Male
  Weight: 71.21 kg

DRUGS (1)
  1. ASPIRIN. [Suspect]
     Active Substance: ASPIRIN
     Indication: PAIN
     Route: 048
     Dates: start: 20190622, end: 20190715

REACTIONS (4)
  - Syncope [None]
  - Inadequate analgesia [None]
  - Unresponsive to stimuli [None]
  - Gastric haemorrhage [None]

NARRATIVE: CASE EVENT DATE: 20190715
